FAERS Safety Report 9223551 (Version 1)
Quarter: 2013Q2

REPORT INFORMATION
  Report Type: Spontaneous
  Country: US (occurrence: US)
  Receive Date: 20130410
  Receipt Date: 20130410
  Transmission Date: 20140414
  Serious: No
  Sender: FDA-Public Use
  Company Number: US-ASTRAZENECA-2013SE20303

PATIENT
  Age: 21921 Day
  Sex: Male
  Weight: 74.8 kg

DRUGS (4)
  1. CRESTOR [Suspect]
     Indication: BLOOD CHOLESTEROL
     Route: 048
     Dates: start: 201211
  2. MULTIVITAMIN [Concomitant]
  3. FISH OIL [Concomitant]
     Dosage: 1000
  4. VITAMIN C [Concomitant]

REACTIONS (7)
  - Back pain [Recovering/Resolving]
  - Blood test abnormal [Unknown]
  - Administration related reaction [Unknown]
  - Blood cholesterol abnormal [Unknown]
  - High density lipoprotein decreased [Unknown]
  - Blood triglycerides increased [Unknown]
  - Low density lipoprotein increased [Unknown]
